FAERS Safety Report 9796829 (Version 1)
Quarter: 2014Q1

REPORT INFORMATION
  Report Type: Report from Study
  Country: KR (occurrence: KR)
  Receive Date: 20140103
  Receipt Date: 20140103
  Transmission Date: 20141002
  Serious: Yes (Death, Other)
  Sender: FDA-Public Use
  Company Number: KR-PFIZER INC-2013374037

PATIENT
  Age: 27 Year
  Sex: Female

DRUGS (2)
  1. PROPOFOL [Suspect]
     Indication: SUBSTANCE USE
     Dosage: UNK
  2. VECURONIUM BROMIDE [Suspect]
     Dosage: UNK

REACTIONS (3)
  - Drug abuse [Fatal]
  - Toxicity to various agents [Fatal]
  - Accidental death [Fatal]
